FAERS Safety Report 17491921 (Version 1)
Quarter: 2020Q1

REPORT INFORMATION
  Report Type: Spontaneous
  Country: US (occurrence: US)
  Receive Date: 20200303
  Receipt Date: 20200303
  Transmission Date: 20200409
  Serious: No
  Sender: FDA-Public Use
  Company Number: US-NOVOPROD-671976

PATIENT
  Age: 55 Year
  Sex: Female

DRUGS (3)
  1. VICTOZA [Suspect]
     Active Substance: LIRAGLUTIDE
     Indication: WEIGHT DECREASED
     Dosage: UNK
     Route: 058
     Dates: start: 201905, end: 2019
  2. VICTOZA [Suspect]
     Active Substance: LIRAGLUTIDE
     Dosage: 1.8 MG
     Route: 058
     Dates: start: 2019, end: 2019
  3. VICTOZA [Suspect]
     Active Substance: LIRAGLUTIDE
     Dosage: DOSE DECREASED
     Route: 058
     Dates: start: 2019

REACTIONS (6)
  - Diarrhoea [Recovering/Resolving]
  - Eructation [Unknown]
  - Nausea [Recovered/Resolved]
  - Flatulence [Recovering/Resolving]
  - Constipation [Recovering/Resolving]
  - Off label use [Not Recovered/Not Resolved]

NARRATIVE: CASE EVENT DATE: 2019
